FAERS Safety Report 8516913-5 (Version None)
Quarter: 2012Q3

REPORT INFORMATION
  Report Type: 
  Country: None (occurrence: None)
  Receive Date: 20120718
  Receipt Date: 20120716
  Transmission Date: 20120928
  Serious: Yes (Other)
  Sender: FDA-Public Use
  Company Number: CA-ELI_LILLY_AND_COMPANY-CA201201002987

PATIENT
  Age: 84 Year
  Sex: Female
  Weight: 61.5 kg

DRUGS (17)
  1. ATACAND [Concomitant]
  2. DIAZEPAM [Concomitant]
  3. ASPIRIN [Concomitant]
     Dosage: 81 MG, UNK
  4. CALCIUM [Concomitant]
  5. ASCORBIC ACID [Concomitant]
  6. ADCIRCA [Suspect]
     Indication: PULMONARY HYPERTENSION
     Dosage: 40 MG, QD
     Dates: start: 20110210, end: 20111201
  7. MAXIDEX [Concomitant]
     Indication: EYE DISORDER
     Route: 047
  8. BOSENTAN [Concomitant]
  9. XALATAN [Concomitant]
     Route: 047
  10. TADALAFIL [Concomitant]
  11. FORTEO [Suspect]
     Indication: OSTEOPOROSIS
     Dosage: 20 UG, QD
     Route: 058
     Dates: start: 20111130
  12. AMITRIPTYLINE HYDROCHLORIDE [Concomitant]
     Dosage: 10 MG, UNKNOWN
     Route: 047
  13. COUMADIN [Concomitant]
  14. FORTEO [Suspect]
     Dosage: 20 UG, QD
     Route: 058
  15. PREMARIN [Concomitant]
  16. VITAMIN D [Concomitant]
  17. ACTONEL [Concomitant]

REACTIONS (3)
  - OSTEOARTHRITIS [None]
  - HYPOACUSIS [None]
  - DEAFNESS UNILATERAL [None]
